FAERS Safety Report 6649781-7 (Version None)
Quarter: 2010Q1

REPORT INFORMATION
  Report Type: 
  Country: None (occurrence: None)
  Receive Date: 20100322
  Receipt Date: 20100309
  Transmission Date: 20100710
  Serious: Yes (Hospitalization, Other)
  Sender: FDA-Public Use
  Company Number: 231875J10USA

PATIENT
  Age: 52 Year
  Sex: Female
  Weight: 97 kg

DRUGS (22)
  1. REBIF [Suspect]
     Indication: MULTIPLE SCLEROSIS
     Dosage: 44 MCG, 3 IN 1 WEEKS, SUBCUTANEOUS
     Route: 058
     Dates: start: 20071121
  2. LOVENOX [Concomitant]
  3. CIPRO [Concomitant]
  4. PREVACID [Concomitant]
  5. LEVOTHYROXINE SODIUM [Concomitant]
  6. TIZANIDINE HCL [Concomitant]
  7. VITAMIN D [Concomitant]
  8. UNSPECIFIED MEDICATION (ALL OTHER THERAPEUTIC PRODUCTS) [Concomitant]
  9. COUMADIN [Concomitant]
  10. PRILOSEC [Concomitant]
  11. PHENERGAN (PROMETHAZINE) [Concomitant]
  12. MIDRIN (MIDRID /00450801/) [Concomitant]
  13. MIRILAX (MACROGEL) [Concomitant]
  14. HYDROCORTONE [Concomitant]
  15. NEURONTIN [Concomitant]
  16. EFFEXOR [Concomitant]
  17. ALBUTEROL [Concomitant]
  18. VALIUM [Concomitant]
  19. NITOF/MONO (ALL OTHER THERAPEUTIC PRODUCTS) [Concomitant]
  20. DANTROLENE SODIUM [Concomitant]
  21. BUTALBITAL (BUTALBITAL) [Concomitant]
  22. FEXOFENEDINE (FEXOFENEDENE) [Concomitant]

REACTIONS (9)
  - ABDOMINAL PAIN [None]
  - BACK PAIN [None]
  - BLOOD POTASSIUM DECREASED [None]
  - CONDITION AGGRAVATED [None]
  - DIARRHOEA [None]
  - HEART DISEASE CONGENITAL [None]
  - INFECTION [None]
  - LUNG DISORDER [None]
  - MOVEMENT DISORDER [None]
